FAERS Safety Report 10616687 (Version 1)
Quarter: 2014Q4

REPORT INFORMATION
  Report Type: Spontaneous
  Country: US (occurrence: US)
  Receive Date: 20141201
  Receipt Date: 20141201
  Transmission Date: 20150529
  Serious: Yes (Hospitalization, Other)
  Sender: FDA-Public Use
  Company Number: US-ACTAVIS-2014-25414

PATIENT
  Sex: Female

DRUGS (6)
  1. ASPIRIN. [Concomitant]
     Active Substance: ASPIRIN
     Indication: PRODUCT USED FOR UNKNOWN INDICATION
     Dosage: UNK, UNKNOWN
     Route: 065
  2. DIAZEPAM (WATSON LABORATORIES) [Suspect]
     Active Substance: DIAZEPAM
     Indication: BLOOD PRESSURE
     Dosage: UNK, UNKNOWN
     Route: 065
  3. CELEBREX [Concomitant]
     Active Substance: CELECOXIB
     Indication: PRODUCT USED FOR UNKNOWN INDICATION
     Dosage: 200 MG, UNKNOWN
     Route: 065
  4. NEURONTIN [Concomitant]
     Active Substance: GABAPENTIN
     Indication: NEURALGIA
     Dosage: UNK, UNKNOWN
     Route: 065
  5. GABAPENTIN (AELLC) [Suspect]
     Active Substance: GABAPENTIN
     Indication: NEURALGIA
     Dosage: UNK, UNKNOWN
     Route: 065
  6. OXYCODONE HYDROCHLORIDE (AELLC) [Suspect]
     Active Substance: OXYCODONE HYDROCHLORIDE
     Indication: PAIN
     Dosage: UNK, UNKNOWN
     Route: 065

REACTIONS (15)
  - Nightmare [Unknown]
  - Vomiting [Unknown]
  - Dyskinesia [Unknown]
  - Dehydration [Unknown]
  - Injury [Unknown]
  - Nausea [Unknown]
  - Malaise [Unknown]
  - Gastrointestinal pain [Unknown]
  - Blood pressure diastolic increased [Unknown]
  - Pain [Unknown]
  - Lip swelling [Unknown]
  - Fatigue [Unknown]
  - Urticaria [Unknown]
  - Drug ineffective [Unknown]
  - Hallucination [Unknown]

NARRATIVE: CASE EVENT DATE: 2014
